FAERS Safety Report 9100512 (Version 1)
Quarter: 2013Q1

REPORT INFORMATION
  Report Type: Spontaneous
  Country: SE (occurrence: SE)
  Receive Date: 20130215
  Receipt Date: 20130215
  Transmission Date: 20140127
  Serious: Yes (Hospitalization)
  Sender: FDA-Public Use
  Company Number: SE-PFIZER INC-2013057189

PATIENT
  Age: 77 Year
  Sex: Female

DRUGS (14)
  1. REVATIO [Suspect]
     Indication: PULMONARY HYPERTENSION
     Dosage: UNK
     Dates: start: 20120613
  2. MULTAQ [Suspect]
     Dosage: 400 MG, UNKNOWN FREQUENCY
     Dates: start: 20121125
  3. NEXIUM [Concomitant]
     Dosage: UNK
  4. MODILOC [Concomitant]
     Dosage: UNK
  5. SIMVASTATIN [Concomitant]
     Dosage: UNK
  6. ZOLPIDEM [Concomitant]
     Dosage: UNK
  7. LOSARTAN [Concomitant]
     Dosage: UNK
  8. WARAN [Concomitant]
     Dosage: UNK
  9. MOLLIPECT [Concomitant]
     Dosage: UNK
  10. FURIX [Concomitant]
     Dosage: UNK
  11. CITODON [Concomitant]
     Dosage: UNK
  12. OXASCAND [Concomitant]
     Dosage: UNK
  13. AMLODIPINE [Concomitant]
     Dosage: UNK
  14. GLYTRIN [Concomitant]
     Dosage: UNK

REACTIONS (3)
  - Tic [Recovered/Resolved]
  - Muscle contractions involuntary [Recovered/Resolved]
  - Tremor [Recovered/Resolved]
